FAERS Safety Report 7313433-0 (Version None)
Quarter: 2011Q1

REPORT INFORMATION
  Report Type: 
  Country: None (occurrence: None)
  Receive Date: 20110225
  Receipt Date: 20110215
  Transmission Date: 20110831
  Serious: No
  Sender: FDA-Public Use
  Company Number: US-PFIZER INC-2010172822

PATIENT
  Age: 51 Year
  Sex: Male
  Weight: 77.11 kg

DRUGS (1)
  1. LIPITOR [Suspect]
     Indication: BLOOD CHOLESTEROL INCREASED
     Dosage: 40 MG, 1X/DAY
     Dates: start: 20100901, end: 20101021

REACTIONS (4)
  - GAIT DISTURBANCE [None]
  - DYSGEUSIA [None]
  - ANGIOPATHY [None]
  - FEELING ABNORMAL [None]
